FAERS Safety Report 17272103 (Version 3)
Quarter: 2020Q4

REPORT INFORMATION
  Report Type: Spontaneous
  Country: US (occurrence: US)
  Receive Date: 20200115
  Receipt Date: 20201028
  Transmission Date: 20210113
  Serious: Yes (Congenital Anomaly, Other)
  Sender: FDA-Public Use
  Company Number: NVSC2020US007347

PATIENT
  Sex: Male

DRUGS (1)
  1. ZOFRAN [Suspect]
     Active Substance: ONDANSETRON HYDROCHLORIDE
     Indication: FOETAL EXPOSURE DURING PREGNANCY
     Route: 064

REACTIONS (32)
  - Foetal exposure during pregnancy [Unknown]
  - Crying [Unknown]
  - Otitis media [Unknown]
  - Language disorder [Unknown]
  - Irritable bowel syndrome [Unknown]
  - Irritability [Unknown]
  - Arthralgia [Unknown]
  - Hypertrophic scar [Unknown]
  - Contusion [Unknown]
  - Pain [Unknown]
  - Cleft palate [Unknown]
  - Deafness bilateral [Unknown]
  - Ear infection [Unknown]
  - Supernumerary teeth [Unknown]
  - Malocclusion [Unknown]
  - Cleft lip [Unknown]
  - Malpositioned teeth [Unknown]
  - Middle ear effusion [Unknown]
  - Cough [Unknown]
  - Epistaxis [Unknown]
  - Pyrexia [Unknown]
  - Vomiting [Unknown]
  - Asthma [Unknown]
  - Ear pain [Unknown]
  - Injury [Unknown]
  - Learning disability [Unknown]
  - Nose deformity [Unknown]
  - Obstructive airways disorder [Unknown]
  - Dehydration [Unknown]
  - Essential hypertension [Unknown]
  - Fall [Unknown]
  - Skin abrasion [Unknown]
